FAERS Safety Report 21637102 (Version 1)
Quarter: 2022Q4

REPORT INFORMATION
  Report Type: Report from Study
  Country: US (occurrence: US)
  Receive Date: 20221124
  Receipt Date: 20221124
  Transmission Date: 20230113
  Serious: No
  Sender: FDA-Public Use
  Company Number: US-ABBVIE-22K-163-4362452-00

PATIENT
  Sex: Male

DRUGS (1)
  1. IMBRUVICA [Suspect]
     Active Substance: IBRUTINIB
     Indication: Chronic lymphocytic leukaemia
     Route: 048
     Dates: start: 20200515

REACTIONS (8)
  - Hyperaesthesia teeth [Unknown]
  - Skin ulcer [Unknown]
  - Skin fissures [Unknown]
  - Increased tendency to bruise [Unknown]
  - Fall [Unknown]
  - Rib fracture [Unknown]
  - Pain of skin [Unknown]
  - Stomatitis [Unknown]
